FAERS Safety Report 5070375-1 (Version None)
Quarter: 2006Q3

REPORT INFORMATION
  Report Type: 
  Country: None (occurrence: None)
  Receive Date: 20060731
  Receipt Date: 20060718
  Transmission Date: 20061208
  Serious: Yes (Death, Other)
  Sender: FDA-Public Use
  Company Number: 2006JP002087

PATIENT
  Age: 58 Year
  Sex: Male

DRUGS (2)
  1. PROGRAF [Suspect]
     Indication: BONE MARROW TRANSPLANT
     Dosage: 6 MG
  2. METHYLPREDNISOLONE [Concomitant]

REACTIONS (8)
  - BLOOD CREATINE INCREASED [None]
  - CEREBRAL HAEMORRHAGE [None]
  - DEHYDRATION [None]
  - DIABETIC COMA [None]
  - DRY EYE [None]
  - FIBRIN D DIMER INCREASED [None]
  - LEUKOENCEPHALOPATHY [None]
  - PANCREATITIS ACUTE [None]
